FAERS Safety Report 6271567-6 (Version None)
Quarter: 2009Q3

REPORT INFORMATION
  Report Type: 
  Country: None (occurrence: None)
  Receive Date: 20090717
  Receipt Date: 20090716
  Transmission Date: 20100115
  Serious: Yes (Life-Threatening, Hospitalization)
  Sender: FDA-Public Use
  Company Number: DE-B.I. PHARMACEUTICALS,INC./RIDGEFIELD-2009-DE-04911DE

PATIENT
  Sex: Female
  Weight: 50 kg

DRUGS (9)
  1. AGGRENOX [Suspect]
     Indication: CEREBROVASCULAR ACCIDENT
     Dosage: 25 MG DIPYRIDAMOLE + 200 MG ACETYL SALICYLIC ACID
     Route: 048
     Dates: start: 20080201
  2. OXAZEPAM [Suspect]
  3. BISOPROLOL 5MG [Concomitant]
     Dosage: 5 MG
  4. EXFORGE 10/160 [Concomitant]
     Dosage: 10 MG AMLODIPINE + 160 MG VALSARTAN
  5. FUROSEMID 40 MG [Concomitant]
     Dosage: 40 MG
  6. LEVIMIR INSULIN [Concomitant]
     Indication: DIABETES MELLITUS
     Dosage: 8 U
  7. SIMVABETA 20 MG [Concomitant]
     Dosage: 20 MG
  8. OMEPRAZOL 20MG [Concomitant]
     Dosage: 20 MG
  9. ALDACTONE [Concomitant]
     Dosage: 25 MG

REACTIONS (3)
  - ACUTE PULMONARY OEDEMA [None]
  - CARDIAC FAILURE [None]
  - DYSPNOEA AT REST [None]
